FAERS Safety Report 12438543 (Version 1)
Quarter: 2016Q2

REPORT INFORMATION
  Report Type: Spontaneous
  Country: US (occurrence: US)
  Receive Date: 20160606
  Receipt Date: 20160606
  Transmission Date: 20160815
  Serious: No
  Sender: FDA-Public Use
  Company Number: US-GLAXOSMITHKLINE-US2016078261

PATIENT
  Sex: Female

DRUGS (1)
  1. EXCEDRIN MENSTRUAL COMPLETE [Suspect]
     Active Substance: ACETAMINOPHEN\ASPIRIN\CAFFEINE
     Indication: HEADACHE
     Dosage: UNK
     Route: 048
     Dates: start: 2015

REACTIONS (3)
  - Expired product administered [Unknown]
  - Off label use [Unknown]
  - Therapeutic response unexpected [Unknown]
